FAERS Safety Report 16407910 (Version 1)
Quarter: 2019Q2

REPORT INFORMATION
  Report Type: Spontaneous
  Country: IT (occurrence: IT)
  Receive Date: 20190610
  Receipt Date: 20190610
  Transmission Date: 20190711
  Serious: Yes (Hospitalization)
  Sender: FDA-Public Use
  Company Number: IT-TEVA-2019-IT-1060050

PATIENT
  Age: 42 Year
  Sex: Male
  Weight: 70 kg

DRUGS (2)
  1. PARACETAMOL [Concomitant]
     Active Substance: ACETAMINOPHEN
  2. AMOXICILLIN. [Suspect]
     Active Substance: AMOXICILLIN
     Indication: TRACHEITIS
     Dosage: 2 GRAM DAILY;
     Route: 048
     Dates: start: 20190520, end: 20190520

REACTIONS (2)
  - Laryngeal oedema [Recovered/Resolved]
  - Skin reaction [Recovered/Resolved]

NARRATIVE: CASE EVENT DATE: 20190520
